FAERS Safety Report 9114526 (Version 1)
Quarter: 2013Q1

REPORT INFORMATION
  Report Type: Report from Study
  Country: CA (occurrence: CA)
  Receive Date: 20130128
  Receipt Date: 20130128
  Transmission Date: 20140127
  Serious: Yes (Other)
  Sender: FDA-Public Use
  Company Number: CA-ROCHE-1184072

PATIENT
  Sex: Female
  Weight: 50 kg

DRUGS (6)
  1. AVASTIN [Suspect]
     Indication: GLIOBLASTOMA
     Route: 042
     Dates: start: 20121221, end: 20130111
  2. DEXAMETHASONE [Concomitant]
  3. VENLAFAXINE [Concomitant]
  4. DOCUSATE SODIUM [Concomitant]
  5. SENOKOT [Concomitant]
  6. LOMUSTINE [Concomitant]
     Indication: CHEMOTHERAPY

REACTIONS (2)
  - Tumour haemorrhage [Unknown]
  - General physical health deterioration [Unknown]
